FAERS Safety Report 23330161 (Version 1)
Quarter: 2023Q4

REPORT INFORMATION
  Report Type: Spontaneous
  Country: FR (occurrence: FR)
  Receive Date: 20231222
  Receipt Date: 20231222
  Transmission Date: 20240110
  Serious: Yes (Hospitalization)
  Sender: FDA-Public Use
  Company Number: None

PATIENT
  Age: 47 Year
  Sex: Female
  Weight: 43 kg

DRUGS (3)
  1. FLUOROURACIL [Suspect]
     Active Substance: FLUOROURACIL
     Indication: Adenocarcinoma of colon
     Dosage: 2400MG/M2 SUR 48H
     Dates: start: 20231023, end: 20231025
  2. IRINOTECAN HYDROCHLORIDE [Suspect]
     Active Substance: IRINOTECAN HYDROCHLORIDE
     Indication: Adenocarcinoma of colon
     Dosage: 180MG/M2 OVER 1 HOUR
     Dates: start: 20231023, end: 20231023
  3. OXALIPLATIN [Suspect]
     Active Substance: OXALIPLATIN
     Indication: Adenocarcinoma of colon
     Dosage: 85MG/M2 OVER 2 HOURS
     Dates: start: 20231023, end: 20231023

REACTIONS (5)
  - Decreased appetite [Recovering/Resolving]
  - Nausea [Recovering/Resolving]
  - Dizziness [Unknown]
  - Dysarthria [Unknown]
  - Diarrhoea [Recovered/Resolved]

NARRATIVE: CASE EVENT DATE: 20231023
